FAERS Safety Report 22880728 (Version 4)
Quarter: 2024Q1

REPORT INFORMATION
  Report Type: Report from Study
  Country: CN (occurrence: CN)
  Receive Date: 20230830
  Receipt Date: 20240209
  Transmission Date: 20240410
  Serious: Yes (Other)
  Sender: FDA-Public Use
  Company Number: CN-ABBVIE-5386579

PATIENT
  Age: 16 Year
  Sex: Male
  Weight: 49 kg

DRUGS (12)
  1. HUMIRA [Suspect]
     Active Substance: ADALIMUMAB
     Indication: Juvenile idiopathic arthritis
     Dosage: FORM STRENGTH- 40 MILLIGRAM
     Route: 058
     Dates: start: 20230503, end: 20240201
  2. METHOTREXATE [Concomitant]
     Active Substance: METHOTREXATE
     Indication: Juvenile idiopathic arthritis
     Dates: start: 20230502
  3. CELECOXIB [Concomitant]
     Active Substance: CELECOXIB
     Indication: Product used for unknown indication
  4. CALCIUM CARBONATE\CHOLECALCIFEROL [Concomitant]
     Active Substance: CALCIUM CARBONATE\CHOLECALCIFEROL
     Indication: Juvenile idiopathic arthritis
     Dosage: 500 MILLIGRAM
     Dates: start: 20230502, end: 20230731
  5. CALCIUM CARBONATE\CHOLECALCIFEROL [Concomitant]
     Active Substance: CALCIUM CARBONATE\CHOLECALCIFEROL
     Indication: Juvenile idiopathic arthritis
     Dosage: 600 MILIGRAM
     Dates: start: 20230801
  6. UREA [Concomitant]
     Active Substance: UREA
     Indication: Ichthyosis
     Dosage: 2 GRAM
     Dates: start: 20230428, end: 20230503
  7. CEFIXIME [Concomitant]
     Active Substance: CEFIXIME
     Indication: Product used for unknown indication
  8. FOLIC ACID [Concomitant]
     Active Substance: FOLIC ACID
     Indication: Juvenile idiopathic arthritis
     Dates: start: 20230502
  9. NAPROXEN [Concomitant]
     Active Substance: NAPROXEN
     Indication: Juvenile idiopathic arthritis
     Dosage: 200 MILLIGRAM
     Dates: start: 20230706
  10. NAPROXEN [Concomitant]
     Active Substance: NAPROXEN
     Indication: Juvenile idiopathic arthritis
     Dosage: 400 MILLIGRAM
     Dates: start: 20230504, end: 20230705
  11. NAPROXEN [Concomitant]
     Active Substance: NAPROXEN
     Indication: Juvenile idiopathic arthritis
     Dosage: TIME INTERVAL: 0.33333333 DAYS: 600 MILLIGRAM
     Dates: start: 20230502, end: 20230503
  12. ROXITHROMYCIN [Concomitant]
     Active Substance: ROXITHROMYCIN
     Indication: Acne
     Dosage: 0.3 GRAM
     Dates: start: 20230428

REACTIONS (3)
  - Renal failure [Recovered/Resolved]
  - Upper respiratory tract infection [Recovered/Resolved]
  - Transaminases increased [Recovering/Resolving]

NARRATIVE: CASE EVENT DATE: 20230601
